FAERS Safety Report 14691864 (Version 2)
Quarter: 2018Q2

REPORT INFORMATION
  Report Type: Spontaneous
  Country: RS (occurrence: RS)
  Receive Date: 20180329
  Receipt Date: 20180403
  Transmission Date: 20180711
  Serious: Yes (Other)
  Sender: FDA-Public Use
  Company Number: RS-009507513-1803SRB007173

PATIENT
  Age: 12 Year
  Sex: Male
  Weight: 45 kg

DRUGS (2)
  1. AERIUS [Suspect]
     Active Substance: DESLORATADINE
     Indication: SEASONAL ALLERGY
     Dosage: 5 ML, QD, STRENGTH : 0.5 MG/ML
     Route: 048
     Dates: start: 2013, end: 2017
  2. AERIUS [Suspect]
     Active Substance: DESLORATADINE
     Dosage: 10 ML, QD
     Route: 048
     Dates: start: 2017, end: 201802

REACTIONS (5)
  - Secretion discharge [Recovered/Resolved]
  - Drug ineffective [Unknown]
  - Asthma [Recovered/Resolved]
  - Bronchial obstruction [Recovered/Resolved]
  - Nasal congestion [Recovered/Resolved]

NARRATIVE: CASE EVENT DATE: 201802
